FAERS Safety Report 5583992-7 (Version None)
Quarter: 2008Q1

REPORT INFORMATION
  Report Type: 
  Country: None (occurrence: None)
  Receive Date: 20080103
  Receipt Date: 20071218
  Transmission Date: 20080703
  Serious: Yes (Other)
  Sender: FDA-Public Use
  Company Number: 2007US003184

PATIENT
  Age: 39 Year
  Sex: Female

DRUGS (3)
  1. ADENOSCAN [Suspect]
     Indication: SCAN MYOCARDIAL PERFUSION
     Dosage: PARENTERAL
     Route: 051
     Dates: start: 20071213, end: 20071213
  2. LYRICA [Concomitant]
  3. ADVIL (PSEUDOEPHEDRINE HYDROCHLORIDE) [Concomitant]

REACTIONS (13)
  - ANXIETY [None]
  - CHEST PAIN [None]
  - DYSPHAGIA [None]
  - DYSPNOEA [None]
  - FACIAL PAIN [None]
  - FLUSHING [None]
  - HEADACHE [None]
  - INSOMNIA [None]
  - LACRIMATION INCREASED [None]
  - NERVOUSNESS [None]
  - PAIN IN JAW [None]
  - PALPITATIONS [None]
  - PANIC REACTION [None]
